FAERS Safety Report 11528308 (Version 4)
Quarter: 2016Q2

REPORT INFORMATION
  Report Type: Spontaneous
  Country: US (occurrence: US)
  Receive Date: 20150921
  Receipt Date: 20160527
  Transmission Date: 20160815
  Serious: Yes (Death, Hospitalization)
  Sender: FDA-Public Use
  Company Number: US-ACTELION-A-US2015-121698

PATIENT
  Age: 75 Year
  Sex: Male

DRUGS (2)
  1. VENTAVIS [Suspect]
     Active Substance: ILOPROST
     Indication: PULMONARY ARTERIAL HYPERTENSION
     Dosage: 5 MCG, 6-9/DAY
     Route: 055
     Dates: start: 20140603, end: 20160520
  2. TRACLEER [Suspect]
     Active Substance: BOSENTAN
     Indication: PULMONARY ARTERIAL HYPERTENSION
     Dosage: 125 MG, BID
     Route: 048
     Dates: start: 20130325, end: 20160520

REACTIONS (7)
  - Oedema peripheral [Recovering/Resolving]
  - Respiratory disorder [Unknown]
  - Muscular weakness [Unknown]
  - Dyspnoea [Recovering/Resolving]
  - Death [Fatal]
  - Anxiety [Unknown]
  - Fear of falling [Unknown]

NARRATIVE: CASE EVENT DATE: 20160520
